FAERS Safety Report 8549302-8 (Version None)
Quarter: 2012Q3

REPORT INFORMATION
  Report Type: 
  Country: None (occurrence: None)
  Receive Date: 20120730
  Receipt Date: 20120720
  Transmission Date: 20120928
  Serious: Yes (Hospitalization)
  Sender: FDA-Public Use
  Company Number: US-ABBOTT-12P-163-0949861-00

PATIENT
  Sex: Male

DRUGS (25)
  1. LIPITOR [Concomitant]
     Indication: BLOOD CHOLESTEROL INCREASED
     Dosage: DAILY
  2. BYSTOLIC [Concomitant]
     Indication: BLOOD CHOLESTEROL INCREASED
     Dosage: DAILY
  3. ZOFRAN [Concomitant]
     Indication: PRODUCT USED FOR UNKNOWN INDICATION
  4. CARVEDILOL [Concomitant]
     Indication: PRODUCT USED FOR UNKNOWN INDICATION
  5. HUMIRA [Suspect]
     Indication: CROHN'S DISEASE
     Dosage: 160MG LOADING DOSE
     Dates: start: 20120612
  6. ZETIA [Concomitant]
     Indication: BLOOD CHOLESTEROL INCREASED
     Dosage: DAILY
  7. XANAX [Concomitant]
     Indication: INSOMNIA
     Dosage: AS NEEDED, DAILY
  8. FIORICET [Concomitant]
     Indication: HEADACHE
     Dosage: UP TO 6 TABLETS PRN
  9. MIRALAX [Concomitant]
     Indication: PRODUCT USED FOR UNKNOWN INDICATION
     Dosage: 1 SCOOP MOST DAYS
  10. AZULFIDINE [Concomitant]
     Indication: PRODUCT USED FOR UNKNOWN INDICATION
     Dosage: ONLY TAKING 2 G DAILY AT MOST
  11. CLONIDINE [Concomitant]
     Indication: BLOOD CHOLESTEROL INCREASED
     Dosage: 2 TABS, TWICE DAILY
  12. NORCO [Concomitant]
     Indication: PANCREATITIS
     Dosage: 10/325MG 2 TABLETS Q4H PRN
  13. NORCO [Concomitant]
     Indication: ABDOMINAL PAIN
  14. PLAVIX [Concomitant]
     Indication: PRODUCT USED FOR UNKNOWN INDICATION
  15. IMURAN [Concomitant]
  16. SYNTHROID [Concomitant]
     Indication: HYPOTHYROIDISM
  17. TRILIPIX [Concomitant]
     Indication: BLOOD CHOLESTEROL INCREASED
     Dosage: DAILY
  18. ASPIRIN [Concomitant]
     Indication: CARDIAC DISORDER
     Dosage: DAILY
  19. NORCO [Concomitant]
     Indication: PAIN
  20. IMURAN [Concomitant]
  21. VICODIN ES [Concomitant]
     Indication: PRODUCT USED FOR UNKNOWN INDICATION
  22. NITROSTAT [Concomitant]
     Indication: PRODUCT USED FOR UNKNOWN INDICATION
  23. LANSOPRAZOLE [Concomitant]
     Indication: PRODUCT USED FOR UNKNOWN INDICATION
  24. IMURAN [Concomitant]
     Indication: CROHN'S DISEASE
     Dosage: DAILY
  25. PROVIGIL [Concomitant]
     Indication: PRODUCT USED FOR UNKNOWN INDICATION

REACTIONS (8)
  - NUCLEAR MAGNETIC RESONANCE IMAGING ABNORMAL [None]
  - AMYLASE INCREASED [None]
  - HYPOPHAGIA [None]
  - LIPASE INCREASED [None]
  - ASTHENIA [None]
  - PANCREATIC DUCT OBSTRUCTION [None]
  - ABDOMINAL DISCOMFORT [None]
  - FOOD INTOLERANCE [None]
